FAERS Safety Report 8995650 (Version 4)
Quarter: 2013Q3

REPORT INFORMATION
  Report Type: Report from Study
  Country: AU (occurrence: AU)
  Receive Date: 20130103
  Receipt Date: 20130806
  Transmission Date: 20140515
  Serious: Yes (Life-Threatening, Hospitalization)
  Sender: FDA-Public Use
  Company Number: AU-CELGENEUS-008-50794-12120810

PATIENT
  Age: 59 Year
  Sex: Male
  Weight: 91.6 kg

DRUGS (21)
  1. VIDAZA [Suspect]
     Indication: ACUTE MYELOID LEUKAEMIA
     Dosage: 75 MILLIGRAM/SQ. METER
     Route: 065
     Dates: start: 20110829
  2. VIDAZA [Suspect]
     Indication: MYELODYSPLASTIC SYNDROME
     Dosage: 75 MILLIGRAM/SQ. METER
     Route: 065
     Dates: start: 20121119, end: 20121206
  3. VIDAZA [Suspect]
     Dosage: 149 MILLIGRAM
     Route: 065
     Dates: start: 20121231, end: 20130101
  4. VIDAZA [Suspect]
     Dosage: 75 MILLIGRAM/SQ. METER
     Route: 065
     Dates: start: 20130208, end: 20130222
  5. PANOBINOSTAT [Suspect]
     Indication: ACUTE MYELOID LEUKAEMIA
     Dosage: 30 MILLIGRAM
     Route: 065
     Dates: start: 20110902
  6. PANOBINOSTAT [Suspect]
     Indication: MYELODYSPLASTIC SYNDROME
     Dosage: 30 MILLIGRAM
     Route: 065
     Dates: start: 20121123, end: 20121206
  7. PANOBINOSTAT [Suspect]
     Route: 065
     Dates: end: 20130101
  8. PANOBINOSTAT [Suspect]
     Dosage: 30 MILLIGRAM
     Route: 065
     Dates: start: 20121207
  9. PANOBINOSTAT [Suspect]
     Dosage: 30 MILLIGRAM
     Route: 065
     Dates: end: 20130222
  10. VALACYCLOVIR [Concomitant]
     Indication: ANTIVIRAL PROPHYLAXIS
     Dosage: 1000 MILLIGRAM
     Route: 048
  11. CIPROFLOXACIN [Concomitant]
     Indication: PROPHYLAXIS
     Dosage: 1000 MILLIGRAM
     Route: 048
  12. OXYCONTIN [Concomitant]
     Indication: PRODUCT USED FOR UNKNOWN INDICATION
     Dosage: 20 MILLIGRAM
     Route: 065
  13. OXYCODONE [Concomitant]
     Indication: PRODUCT USED FOR UNKNOWN INDICATION
     Dosage: 20 MILLIGRAM
     Route: 065
  14. ROSUVASTATIN [Concomitant]
     Indication: HYPERCHOLESTEROLAEMIA
     Route: 048
  15. ROSUVASTATIN [Concomitant]
     Dosage: 100 MILLIGRAM
     Route: 048
  16. POSACONAZOLE [Concomitant]
     Indication: ANTIFUNGAL PROPHYLAXIS
     Dosage: 600 MILLIGRAM
     Route: 048
  17. CODEINE [Concomitant]
     Indication: COUGH
     Dosage: 5MG/1ML
     Route: 065
  18. CODEINE [Concomitant]
     Dosage: 25MG/5ML
     Route: 065
  19. DESVENLAFAXIN [Concomitant]
     Indication: DEPRESSION
     Route: 048
  20. ENDURE [Concomitant]
     Indication: PRODUCT USED FOR UNKNOWN INDICATION
     Dosage: 30 MILLIGRAM
     Route: 065
  21. VORICONAZOLE [Concomitant]
     Indication: PRODUCT USED FOR UNKNOWN INDICATION
     Route: 065

REACTIONS (4)
  - Acute myeloid leukaemia [Unknown]
  - Febrile neutropenia [Recovered/Resolved with Sequelae]
  - Nocardiosis [Recovered/Resolved with Sequelae]
  - Bronchopulmonary aspergillosis [Recovered/Resolved with Sequelae]
